FAERS Safety Report 4346472-2 (Version None)
Quarter: 2004Q2

REPORT INFORMATION
  Report Type: 
  Country: None (occurrence: None)
  Receive Date: 20040426
  Receipt Date: 20030523
  Transmission Date: 20050107
  Serious: No
  Sender: FDA-Public Use
  Company Number: US-BRISTOL-MYERS SQUIBB COMPANY-12284998

PATIENT

DRUGS (1)
  1. CARBOPLATIN [Suspect]
     Dosage: 150 MG LOT#3A70629, EXPIRATION 30-NOV-2005

REACTIONS (3)
  - CHEST DISCOMFORT [None]
  - DYSPNOEA [None]
  - HYPERTENSION [None]
